FAERS Safety Report 21930316 (Version 1)
Quarter: 2023Q1

REPORT INFORMATION
  Report Type: Spontaneous
  Country: US (occurrence: US)
  Receive Date: 20230131
  Receipt Date: 20230131
  Transmission Date: 20230418
  Serious: No
  Sender: FDA-Public Use
  Company Number: US-BRISTOL-MYERS SQUIBB COMPANY-2023-014124

PATIENT
  Age: 28 Year
  Weight: 145 kg

DRUGS (1)
  1. SOTYKTU [Suspect]
     Active Substance: DEUCRAVACITINIB
     Indication: Psoriasis
     Dosage: FREQ : DAILY
     Route: 048
     Dates: start: 20230124

REACTIONS (2)
  - Nasopharyngitis [Unknown]
  - Acne [Unknown]

NARRATIVE: CASE EVENT DATE: 20230126
